FAERS Safety Report 11740652 (Version 2)
Quarter: 2015Q4

REPORT INFORMATION
  Report Type: Spontaneous
  Country: US (occurrence: US)
  Receive Date: 20151110
  Receipt Date: 20151120
  Transmission Date: 20160304
  Serious: No
  Sender: FDA-Public Use
  Company Number: US-ELI_LILLY_AND_COMPANY-US201201005272

PATIENT
  Age: 72 Year
  Sex: Female

DRUGS (5)
  1. FORTEO [Suspect]
     Active Substance: TERIPARATIDE
     Indication: OSTEOPOROSIS
     Dosage: UNK UNK, QD
     Route: 065
  2. FORTEO [Interacting]
     Active Substance: TERIPARATIDE
     Dosage: UNK UNK, QD
  3. HYDROCHLOROTHIAZIDE. [Interacting]
     Active Substance: HYDROCHLOROTHIAZIDE
  4. FORTEO [Interacting]
     Active Substance: TERIPARATIDE
     Dosage: UNK UNK, QD
     Route: 065
  5. FORTEO [Interacting]
     Active Substance: TERIPARATIDE
     Dosage: UNK UNK, QD

REACTIONS (9)
  - Fatigue [Unknown]
  - Malaise [Unknown]
  - Drug interaction [Unknown]
  - Heart rate irregular [Unknown]
  - Pain in extremity [Recovered/Resolved]
  - Nausea [Not Recovered/Not Resolved]
  - Hypotension [Unknown]
  - Incorrect dose administered by device [Unknown]
  - Incorrect dose administered [Recovered/Resolved]

NARRATIVE: CASE EVENT DATE: 20130117
